FAERS Safety Report 12842792 (Version 2)
Quarter: 2016Q4

REPORT INFORMATION
  Report Type: Spontaneous
  Country: US (occurrence: US)
  Receive Date: 20161013
  Receipt Date: 20161014
  Transmission Date: 20170207
  Serious: No
  Sender: FDA-Public Use
  Company Number: US-PFIZER INC-2016476748

PATIENT
  Age: 49 Year
  Sex: Male
  Weight: 180.53 kg

DRUGS (3)
  1. GABA [Suspect]
     Active Substance: .GAMMA.-AMINOBUTYRIC ACID
     Indication: PAIN
     Dosage: 750 MG, UNK
  2. GABA [Suspect]
     Active Substance: .GAMMA.-AMINOBUTYRIC ACID
     Indication: NEUROPATHY PERIPHERAL
  3. NEURONTIN [Suspect]
     Active Substance: GABAPENTIN
     Dosage: 1200 MG, 3X/DAY (300MG FOUR CAPSULES THREE TIMES A DAY)

REACTIONS (4)
  - Drug ineffective for unapproved indication [Unknown]
  - Pain [Unknown]
  - Peripheral coldness [Not Recovered/Not Resolved]
  - Testicular pain [Unknown]
